FAERS Safety Report 8471898-5 (Version None)
Quarter: 2012Q2

REPORT INFORMATION
  Report Type: 
  Country: None (occurrence: None)
  Receive Date: 20120627
  Receipt Date: 20120619
  Transmission Date: 20120825
  Serious: Yes (Other)
  Sender: FDA-Public Use
  Company Number: US-ROXANE LABORATORIES, INC.-2012-RO-01451RO

PATIENT
  Age: 11 Month
  Sex: Male

DRUGS (1)
  1. LORAZEPAM [Suspect]
     Dosage: 1.9 ML
     Route: 042

REACTIONS (1)
  - INCORRECT ROUTE OF DRUG ADMINISTRATION [None]
